FAERS Safety Report 19072613 (Version 1)
Quarter: 2021Q1

REPORT INFORMATION
  Report Type: Spontaneous
  Country: BR (occurrence: BR)
  Receive Date: 20210330
  Receipt Date: 20210330
  Transmission Date: 20210420
  Serious: Yes (Other)
  Sender: FDA-Public Use
  Company Number: BR-LUPIN PHARMACEUTICALS INC.-2021-03896

PATIENT
  Sex: Male

DRUGS (5)
  1. CHLOROQUINE. [Suspect]
     Active Substance: CHLOROQUINE
     Indication: ANKYLOSING SPONDYLITIS
  2. CHLOROQUINE. [Suspect]
     Active Substance: CHLOROQUINE
     Indication: ERYTHEMA ANNULARE
     Dosage: 500 MILLIGRAM, QD
     Route: 065
  3. ADALIMUMAB [Concomitant]
     Active Substance: ADALIMUMAB
     Indication: ERYTHEMA ANNULARE
     Dosage: 40 MILLIGRAM, 2 WEEKLY
     Route: 058
  4. HYDROXYCHLOROQUINE [Suspect]
     Active Substance: HYDROXYCHLOROQUINE
     Indication: ERYTHEMA ANNULARE
     Dosage: 400 MILLIGRAM, QD
     Route: 065
  5. HYDROXYCHLOROQUINE [Suspect]
     Active Substance: HYDROXYCHLOROQUINE
     Indication: ANKYLOSING SPONDYLITIS

REACTIONS (1)
  - Treatment failure [Unknown]
